FAERS Safety Report 8586836-4 (Version None)
Quarter: 2012Q3

REPORT INFORMATION
  Report Type: 
  Country: None (occurrence: None)
  Receive Date: 20120810
  Receipt Date: 20120807
  Transmission Date: 20120928
  Serious: Yes (Hospitalization, Disabling, Other)
  Sender: FDA-Public Use
  Company Number: US-009507513-1009USA00853

PATIENT

DRUGS (2)
  1. LIPITOR [Concomitant]
     Indication: BLOOD CHOLESTEROL
     Route: 048
     Dates: start: 19930101
  2. FOSAMAX [Suspect]
     Indication: OSTEOPOROSIS
     Dosage: 70 MG, UNK
     Route: 048
     Dates: start: 20050420, end: 20071128

REACTIONS (42)
  - GINGIVITIS [None]
  - NODULE [None]
  - DYSPNOEA [None]
  - FUNGAL INFECTION [None]
  - FALL [None]
  - DYSURIA [None]
  - PHOTOSENSITIVITY REACTION [None]
  - PULMONARY HYPERTENSION [None]
  - OSTEONECROSIS OF JAW [None]
  - VERTIGO [None]
  - DYSPNOEA EXERTIONAL [None]
  - WEIGHT DECREASED [None]
  - ASTHENIA [None]
  - TINNITUS [None]
  - CARDIAC MURMUR [None]
  - CONSTIPATION [None]
  - HYPOTENSION [None]
  - PERIODONTAL DISEASE [None]
  - ATRIAL FIBRILLATION [None]
  - URINARY TRACT INFECTION FUNGAL [None]
  - ADVERSE EVENT [None]
  - OEDEMA PERIPHERAL [None]
  - MITRAL VALVE INCOMPETENCE [None]
  - ADVERSE DRUG REACTION [None]
  - FATIGUE [None]
  - ECZEMA [None]
  - AORTIC VALVE INCOMPETENCE [None]
  - HEARING IMPAIRED [None]
  - BONE LOSS [None]
  - COUGH [None]
  - ARTERIOSCLEROSIS CORONARY ARTERY [None]
  - CARDIOMYOPATHY [None]
  - EYE PRURITUS [None]
  - ANOSMIA [None]
  - RENAL DISORDER [None]
  - RHEUMATOID ARTHRITIS [None]
  - CHEST PAIN [None]
  - NOCTURIA [None]
  - INCREASED TENDENCY TO BRUISE [None]
  - CARDIAC FAILURE [None]
  - CARDIAC HYPERTROPHY [None]
  - TRICUSPID VALVE INCOMPETENCE [None]
